FAERS Safety Report 24955823 (Version 5)
Quarter: 2025Q4

REPORT INFORMATION
  Report Type: Other
  Country: US (occurrence: US)
  Receive Date: 20250211
  Receipt Date: 20251031
  Transmission Date: 20260117
  Serious: No
  Sender: TRAVERE THERAPEUTICS
  Company Number: US-TRAVERE-2025TVT00163

PATIENT
  Age: 31 Year
  Sex: Male

DRUGS (1)
  1. FILSPARI [Suspect]
     Active Substance: SPARSENTAN
     Indication: IgA nephropathy
     Dosage: LOT NUMBER: 1979025, EXPIRY DATE: 31-AUG-2026
     Route: 048
     Dates: start: 20241007, end: 20250925

REACTIONS (8)
  - Blood pressure increased [Unknown]
  - Hypotension [None]
  - Hypoaesthesia [Recovering/Resolving]
  - Paraesthesia [Recovering/Resolving]
  - Head discomfort [Recovering/Resolving]
  - Headache [Unknown]
  - Palpitations [None]
  - Off label use [Unknown]
